FAERS Safety Report 18850883 (Version 1)
Quarter: 2021Q1

REPORT INFORMATION
  Report Type: Spontaneous
  Country: US (occurrence: US)
  Receive Date: 20210204
  Receipt Date: 20210204
  Transmission Date: 20210420
  Serious: No
  Sender: FDA-Public Use
  Company Number: US-PURDUE PHARMA-USA-2020-0180196

PATIENT
  Age: 57 Year
  Sex: Female

DRUGS (1)
  1. LIDOCAINE. [Suspect]
     Active Substance: LIDOCAINE
     Indication: BACK PAIN
     Dosage: 1 PATCH, DAILY
     Route: 062
     Dates: start: 202010

REACTIONS (3)
  - Product adhesion issue [Unknown]
  - Prescription drug used without a prescription [Unknown]
  - Pain [Unknown]

NARRATIVE: CASE EVENT DATE: 20201116
